FAERS Safety Report 25830613 (Version 2)
Quarter: 2025Q3

REPORT INFORMATION
  Report Type: Report from Study
  Country: US (occurrence: US)
  Receive Date: 20250922
  Receipt Date: 20250924
  Transmission Date: 20251020
  Serious: Yes (Other)
  Sender: ACADIA PHARMACEUTICALS
  Company Number: US-ACADIA PHARMACEUTICALS INC.-ACA-2025-PIM-010463

PATIENT
  Age: 73 Year
  Sex: Female

DRUGS (21)
  1. NUPLAZID [Suspect]
     Active Substance: PIMAVANSERIN TARTRATE
     Indication: Parkinson^s disease psychosis
     Dosage: 34 MILLIGRAM, QD
     Route: 048
     Dates: start: 20250911, end: 20250916
  2. QUETIAPINE FUMARATE [Suspect]
     Active Substance: QUETIAPINE FUMARATE
     Indication: Product used for unknown indication
     Route: 065
     Dates: end: 202509
  3. BUSPIRONE HCL [Concomitant]
     Active Substance: BUSPIRONE HYDROCHLORIDE
  4. CARBIDOPA\LEVODOPA [Concomitant]
     Active Substance: CARBIDOPA\LEVODOPA
  5. CELECOXIB [Concomitant]
     Active Substance: CELECOXIB
  6. FAMOTIDINE [Concomitant]
     Active Substance: FAMOTIDINE
  7. FENOFIBRATE [Concomitant]
     Active Substance: FENOFIBRATE
  8. LANTUS SOLOSTAR [Concomitant]
     Active Substance: INSULIN GLARGINE
  9. LEVOTHYROXINE [Concomitant]
     Active Substance: LEVOTHYROXINE
  10. LOSARTAN POTASSIUM [Concomitant]
     Active Substance: LOSARTAN POTASSIUM
  11. METOPROLOL SUCCINATE [Concomitant]
     Active Substance: METOPROLOL SUCCINATE
  12. MONTELUKAST [Concomitant]
     Active Substance: MONTELUKAST
  13. VITAMINS NOS [Concomitant]
     Active Substance: VITAMINS
  14. NOVOLOG [Concomitant]
     Active Substance: INSULIN ASPART
  15. OZEMPIC [Concomitant]
     Active Substance: SEMAGLUTIDE
  16. ROSUVASTATIN [Concomitant]
     Active Substance: ROSUVASTATIN
  17. TERAZOSIN HYDROCHLORIDE [Concomitant]
     Active Substance: TERAZOSIN HYDROCHLORIDE
  18. TOPIRAMATE [Concomitant]
     Active Substance: TOPIRAMATE
  19. VENLAFAXINE [Concomitant]
     Active Substance: VENLAFAXINE HYDROCHLORIDE
  20. VITAMIN B12 [Concomitant]
     Active Substance: CYANOCOBALAMIN
  21. VITAMIN D NOS [Concomitant]
     Active Substance: CHOLECALCIFEROL\ERGOCALCIFEROL

REACTIONS (6)
  - Hallucination [Unknown]
  - Blood glucose increased [Unknown]
  - Drug interaction [Unknown]
  - Insomnia [Unknown]
  - Peripheral swelling [Unknown]
  - Somnolence [Unknown]

NARRATIVE: CASE EVENT DATE: 20250901
